FAERS Safety Report 10570263 (Version 1)
Quarter: 2014Q4

REPORT INFORMATION
  Report Type: Spontaneous
  Country: US (occurrence: None)
  Receive Date: 20141106
  Receipt Date: 20141106
  Transmission Date: 20150529
  Serious: Yes (Disabling)
  Sender: FDA-Public Use
  Company Number: None

PATIENT
  Age: 65 Year
  Sex: Female
  Weight: 113.4 kg

DRUGS (1)
  1. OXYBUTYNIN TAB 10 MG ER KREMERS [Suspect]
     Active Substance: OXYBUTYNIN
     Indication: URINARY INCONTINENCE
     Dosage: 1 PILL
     Route: 048
     Dates: start: 20140714, end: 20141104

REACTIONS (3)
  - Incontinence [None]
  - Medication residue present [None]
  - Condition aggravated [None]

NARRATIVE: CASE EVENT DATE: 20141103
